FAERS Safety Report 23625114 (Version 1)
Quarter: 2024Q1

REPORT INFORMATION
  Report Type: Report from Study
  Country: US (occurrence: US)
  Receive Date: 20240313
  Receipt Date: 20240313
  Transmission Date: 20240410
  Serious: Yes (Other)
  Sender: FDA-Public Use
  Company Number: US-ABBVIE-5591289

PATIENT
  Sex: Female

DRUGS (1)
  1. SKYRIZI [Suspect]
     Active Substance: RISANKIZUMAB-RZAA
     Indication: Psoriatic arthropathy
     Route: 058
     Dates: start: 20230810

REACTIONS (8)
  - Arthritis [Recovering/Resolving]
  - Psoriatic arthropathy [Recovered/Resolved]
  - Skin disorder [Not Recovered/Not Resolved]
  - Arthralgia [Unknown]
  - Sinus disorder [Not Recovered/Not Resolved]
  - Multiple allergies [Unknown]
  - Illness [Recovered/Resolved]
  - Therapeutic response shortened [Unknown]
